FAERS Safety Report 9430789 (Version 1)
Quarter: 2013Q3

REPORT INFORMATION
  Report Type: Spontaneous
  Country: IN (occurrence: None)
  Receive Date: 20130726
  Receipt Date: 20130726
  Transmission Date: 20140515
  Serious: Yes (Death)
  Sender: FDA-Public Use
  Company Number: FK201302686

PATIENT
  Age: 58 Year
  Sex: Female

DRUGS (3)
  1. CYTARABINE [Suspect]
     Indication: ACUTE MYELOID LEUKAEMIA
  2. DAUNORUBICIN [Suspect]
     Indication: ACUTE MYELOID LEUKAEMIA
  3. CASPOFUNGIN [Suspect]
     Indication: ACUTE MYELOID LEUKAEMIA

REACTIONS (6)
  - Atrioventricular block complete [None]
  - Neutropenia [None]
  - Bronchopulmonary aspergillosis [None]
  - Toxicity to various agents [None]
  - Mucous membrane disorder [None]
  - Respiratory distress [None]
